FAERS Safety Report 8957002 (Version 1)
Quarter: 2012Q4

REPORT INFORMATION
  Report Type: 
  Country: US (occurrence: US)
  Receive Date: 20121211
  Receipt Date: 20121211
  Transmission Date: 20130627
  Serious: Yes (Hospitalization)
  Sender: FDA-Public Use
  Company Number: US-BAYER-2012-128727

PATIENT
  Age: 47 Year
  Sex: Female
  Weight: 67.57 kg

DRUGS (4)
  1. YASMIN [Suspect]
     Dosage: UNK
     Dates: end: 20030103
  2. MULTIVITAMIN [Concomitant]
  3. ALEVE [Concomitant]
  4. ANTIBIOTICS [Concomitant]
     Indication: CELLULITIS

REACTIONS (1)
  - Deep vein thrombosis [None]
